FAERS Safety Report 7941147-2 (Version None)
Quarter: 2011Q4

REPORT INFORMATION
  Report Type: 
  Country: None (occurrence: None)
  Receive Date: 20111128
  Receipt Date: 20111117
  Transmission Date: 20120403
  Serious: Yes (Hospitalization)
  Sender: FDA-Public Use
  Company Number: AU-B.I. PHARMACEUTICALS,INC./RIDGEFIELD-2011-AU-02218AU

PATIENT
  Age: 67 Year
  Sex: Male

DRUGS (6)
  1. ACTOS [Concomitant]
  2. METFORMIN HCL [Concomitant]
  3. PRADAXA [Suspect]
     Indication: ATRIAL FIBRILLATION
     Dosage: 300 MG
     Dates: start: 20110709
  4. AVAPRO [Concomitant]
  5. SOTALOL HCL [Concomitant]
  6. GLICLAZIDE [Concomitant]

REACTIONS (4)
  - GASTRITIS [None]
  - CHEST PAIN [None]
  - EPIGASTRIC DISCOMFORT [None]
  - GASTROINTESTINAL DISORDER [None]
